FAERS Safety Report 20435852 (Version 1)
Quarter: 2022Q1

REPORT INFORMATION
  Report Type: Spontaneous
  Country: US (occurrence: US)
  Receive Date: 20220207
  Receipt Date: 20220207
  Transmission Date: 20220423
  Serious: No
  Sender: FDA-Public Use
  Company Number: US-TEVA-2022-US-2002231

PATIENT
  Age: 83 Year
  Sex: Female
  Weight: 79.83 kg

DRUGS (1)
  1. GLYBURIDE [Suspect]
     Active Substance: GLYBURIDE
     Route: 065

REACTIONS (3)
  - Illness [Unknown]
  - Malaise [Unknown]
  - Drug intolerance [Unknown]
